FAERS Safety Report 22532610 (Version 1)
Quarter: 2023Q2

REPORT INFORMATION
  Report Type: Spontaneous
  Country: US (occurrence: US)
  Receive Date: 20230607
  Receipt Date: 20230607
  Transmission Date: 20230722
  Serious: No
  Sender: FDA-Public Use
  Company Number: US-JNJFOC-20230567854

PATIENT
  Age: 70 Year
  Sex: Female

DRUGS (13)
  1. IMODIUM [Suspect]
     Active Substance: LOPERAMIDE HYDROCHLORIDE
     Indication: Diarrhoea
     Route: 065
  2. TREPROSTINIL SODIUM [Concomitant]
     Active Substance: TREPROSTINIL SODIUM
     Indication: Pulmonary arterial hypertension
     Dosage: 0.010 UG/KG
     Route: 041
     Dates: start: 2023, end: 2023
  3. TREPROSTINIL SODIUM [Concomitant]
     Active Substance: TREPROSTINIL SODIUM
     Dosage: 0.010 UG/KG,
     Route: 058
     Dates: start: 2023, end: 2023
  4. REMODULIN [Concomitant]
     Active Substance: TREPROSTINIL
     Indication: Pulmonary arterial hypertension
     Dosage: 0.01990 UG/KG
     Route: 058
     Dates: start: 2023
  5. REMODULIN [Concomitant]
     Active Substance: TREPROSTINIL
     Dosage: 0.02736 UG/KG,
     Route: 058
     Dates: start: 2023
  6. REMODULIN [Concomitant]
     Active Substance: TREPROSTINIL
     Route: 058
     Dates: start: 2023
  7. OPSUMIT [Concomitant]
     Active Substance: MACITENTAN
     Indication: Product used for unknown indication
     Route: 065
  8. LIDOCAINE [Concomitant]
     Active Substance: LIDOCAINE
     Indication: Pain
     Route: 065
  9. LIDOCAINE [Concomitant]
     Active Substance: LIDOCAINE
     Indication: Inflammation
  10. TRIAMCINOLONE [Concomitant]
     Active Substance: TRIAMCINOLONE
     Indication: Inflammation
     Route: 065
  11. TRIAMCINOLONE [Concomitant]
     Active Substance: TRIAMCINOLONE
     Indication: Pain
  12. TYLENOL [Concomitant]
     Active Substance: ACETAMINOPHEN
     Indication: Inflammation
     Route: 065
  13. TYLENOL [Concomitant]
     Active Substance: ACETAMINOPHEN
     Indication: Pain

REACTIONS (1)
  - Constipation [Not Recovered/Not Resolved]
